FAERS Safety Report 23693512 (Version 3)
Quarter: 2024Q2

REPORT INFORMATION
  Report Type: Spontaneous
  Country: US (occurrence: US)
  Receive Date: 20240401
  Receipt Date: 20240529
  Transmission Date: 20240716
  Serious: Yes (Hospitalization, Other)
  Sender: FDA-Public Use
  Company Number: US-SA-SAC20240401000034

PATIENT
  Age: 51 Year
  Sex: Female
  Weight: 85.2 kg

DRUGS (37)
  1. DUPIXENT [Suspect]
     Active Substance: DUPILUMAB
     Indication: Asthma
     Dosage: 300 MG, QOW
     Route: 058
  2. CLARITHROMYCIN [Concomitant]
     Active Substance: CLARITHROMYCIN
  3. ZENPEP [Concomitant]
     Active Substance: PANCRELIPASE AMYLASE\PANCRELIPASE LIPASE\PANCRELIPASE PROTEASE
     Dosage: 10-32-42K CAPSULE DR
  4. WELLBUTRIN XL [Concomitant]
     Active Substance: BUPROPION HYDROCHLORIDE
     Dosage: 1 DF, QD
  5. TYLENOL [Concomitant]
     Active Substance: ACETAMINOPHEN
  6. POTASSIUM GLUCONATE [Concomitant]
     Active Substance: POTASSIUM GLUCONATE
  7. OMEGA-3 FATTY ACIDS [Concomitant]
     Active Substance: OMEGA-3 FATTY ACIDS
  8. LEVOTHYROXINE SODIUM [Concomitant]
     Active Substance: LEVOTHYROXINE SODIUM
  9. IRBESARTAN [Concomitant]
     Active Substance: IRBESARTAN
  10. MINERALS\VITAMINS [Concomitant]
     Active Substance: MINERALS\VITAMINS
  11. LACTOBACILLUS ACIDOPHILUS;PECTIN [Concomitant]
  12. LEVOSALBUTAMOL TARTRATE [Concomitant]
  13. NAMENDA [Concomitant]
     Active Substance: MEMANTINE HYDROCHLORIDE
  14. CLINDAMYCIN [Concomitant]
     Active Substance: CLINDAMYCIN
  15. METFORMIN HYDROCHLORIDE [Concomitant]
     Active Substance: METFORMIN HYDROCHLORIDE
  16. SYNTHROID [Concomitant]
     Active Substance: LEVOTHYROXINE SODIUM
  17. REMERON [Concomitant]
     Active Substance: MIRTAZAPINE
  18. DOXAZOSIN MESYLATE [Concomitant]
     Active Substance: DOXAZOSIN MESYLATE
  19. VITAMIN D3 [Concomitant]
     Active Substance: CHOLECALCIFEROL
  20. XOPENEX [Concomitant]
     Active Substance: LEVALBUTEROL HYDROCHLORIDE
     Dosage: 1.25 MG/ 0.5 ML
  21. SINGULAIR [Concomitant]
     Active Substance: MONTELUKAST SODIUM
  22. TRIGLIDE [Concomitant]
     Active Substance: FENOFIBRATE
  23. NABUMETONE [Concomitant]
     Active Substance: NABUMETONE
  24. BESIVANCE [Concomitant]
     Active Substance: BESIFLOXACIN
  25. COZAAR [Concomitant]
     Active Substance: LOSARTAN POTASSIUM
  26. FISH OIL\OMEGA-3 FATTY ACIDS [Concomitant]
     Active Substance: FISH OIL\OMEGA-3 FATTY ACIDS
  27. DYMISTA [Concomitant]
     Active Substance: AZELASTINE HYDROCHLORIDE\FLUTICASONE PROPIONATE
     Dosage: 137-50 MCG
  28. LEVEMIR [Concomitant]
     Active Substance: INSULIN DETEMIR
  29. LAMICTAL [Concomitant]
     Active Substance: LAMOTRIGINE
  30. ACETAMINOPHEN\CHLORZOXAZONE [Concomitant]
     Active Substance: ACETAMINOPHEN\CHLORZOXAZONE
  31. MACROBID [Concomitant]
     Active Substance: NITROFURANTOIN\NITROFURANTOIN MONOHYDRATE
  32. SEROQUEL [Concomitant]
     Active Substance: QUETIAPINE FUMARATE
  33. NOVOLOG [Concomitant]
     Active Substance: INSULIN ASPART
  34. GABAPENTIN [Concomitant]
     Active Substance: GABAPENTIN
  35. POTASSIUM CHLORIDE [Concomitant]
     Active Substance: POTASSIUM CHLORIDE
  36. SYMBICORT [Concomitant]
     Active Substance: BUDESONIDE\FORMOTEROL FUMARATE DIHYDRATE
  37. SPIRIVA [Concomitant]
     Active Substance: TIOTROPIUM BROMIDE MONOHYDRATE

REACTIONS (3)
  - Diverticulitis [Unknown]
  - Hospitalisation [Unknown]
  - Sinusitis [Unknown]

NARRATIVE: CASE EVENT DATE: 20240501
